FAERS Safety Report 8512588-X (Version None)
Quarter: 2012Q3

REPORT INFORMATION
  Report Type: 
  Country: None (occurrence: None)
  Receive Date: 20120716
  Receipt Date: 20120705
  Transmission Date: 20120928
  Serious: Yes (Other)
  Sender: FDA-Public Use
  Company Number: DE-PFIZER INC-2012162385

PATIENT
  Age: 51 Year
  Sex: Male

DRUGS (2)
  1. CABERGOLINE [Suspect]
     Dosage: 4 MG/DAY
  2. CABERGOLINE [Suspect]
     Dosage: 26 MG/DAY

REACTIONS (1)
  - CARDIAC VALVE SCLEROSIS [None]
